FAERS Safety Report 10037913 (Version 4)
Quarter: 2014Q2

REPORT INFORMATION
  Report Type: Report from Study
  Country: MX (occurrence: MX)
  Receive Date: 20140326
  Receipt Date: 20140613
  Transmission Date: 20141212
  Serious: Yes (Other)
  Sender: FDA-Public Use
  Company Number: MX-BAYER-2014-043211

PATIENT
  Age: 70 Year
  Sex: Female
  Weight: 49.9 kg

DRUGS (9)
  1. REGORAFENIB [Suspect]
     Indication: COLON CANCER
     Dosage: 160 MG, QD
     Route: 048
     Dates: start: 20140102, end: 20140127
  2. REGORAFENIB [Suspect]
     Indication: COLON CANCER
     Dosage: 160 MG, QD
     Route: 048
     Dates: start: 20140204, end: 20140211
  3. REGORAFENIB [Suspect]
     Indication: COLON CANCER
     Dosage: UNK
     Route: 048
     Dates: start: 20140216
  4. CODIOVAN [Concomitant]
     Indication: HYPERTENSION
     Dosage: 80 MG, QD
     Route: 048
     Dates: start: 2011, end: 20140304
  5. INSULIN [Concomitant]
     Indication: DIABETES MELLITUS
     Dosage: DAILY DOSE 33 IU
     Route: 058
     Dates: start: 2011, end: 20140304
  6. METFORMINE [Concomitant]
     Indication: DIABETES MELLITUS
     Dosage: 1000 MG, QD
     Route: 048
     Dates: start: 201303, end: 20140304
  7. METOPROLOL [Concomitant]
     Indication: TACHYCARDIA
     Dosage: 1000 MG, QD
     Route: 048
     Dates: start: 2012, end: 20140304
  8. ASPIRINE [Concomitant]
     Indication: PROPHYLAXIS
     Dosage: 100 MG, QD
     Route: 048
     Dates: start: 201303, end: 20140304
  9. ENALAPRIL [Concomitant]
     Dosage: 20 MG, QD
     Route: 044

REACTIONS (1)
  - Hypertension [Recovered/Resolved]
